FAERS Safety Report 6183320-2 (Version None)
Quarter: 2009Q2

REPORT INFORMATION
  Report Type: 
  Country: None (occurrence: None)
  Receive Date: 20090506
  Receipt Date: 20090422
  Transmission Date: 20091009
  Serious: Yes (Hospitalization)
  Sender: FDA-Public Use
  Company Number: ALK21-2009-00010

PATIENT
  Sex: Male
  Weight: 62 kg

DRUGS (3)
  1. VIVITROL [Suspect]
     Indication: DRUG DEPENDENCE
     Dosage: 380 MG 1X/MONTH INTRAMUSCULAR
     Route: 030
     Dates: start: 20090112, end: 20090312
  2. ACYCLOVIR [Concomitant]
  3. IBUPROFEN [Concomitant]

REACTIONS (4)
  - CHOLELITHIASIS [None]
  - DUODENITIS [None]
  - GASTRITIS EROSIVE [None]
  - PANCREATITIS ACUTE [None]
